FAERS Safety Report 4719423-6 (Version None)
Quarter: 2005Q3

REPORT INFORMATION
  Report Type: 
  Country: None (occurrence: None)
  Receive Date: 20050721
  Receipt Date: 20050630
  Transmission Date: 20060218
  Serious: No
  Sender: FDA-Public Use
  Company Number: US-BRISTOL-MYERS SQUIBB COMPANY-13021696

PATIENT
  Age: 55 Year
  Sex: Female

DRUGS (4)
  1. ESTRACE [Suspect]
     Indication: MENOPAUSAL SYMPTOMS
     Route: 048
     Dates: start: 20050615
  2. HYDROCHLOROTHIAZIDE [Concomitant]
     Dates: start: 20040101
  3. CELEBREX [Concomitant]
     Dates: start: 19990101
  4. NEXIUM [Concomitant]

REACTIONS (1)
  - DRUG INEFFECTIVE [None]
